FAERS Safety Report 10173998 (Version 1)
Quarter: 2014Q2

REPORT INFORMATION
  Report Type: Spontaneous
  Country: US (occurrence: None)
  Receive Date: 20140514
  Receipt Date: 20140514
  Transmission Date: 20141212
  Serious: No
  Sender: FDA-Public Use
  Company Number: None

PATIENT
  Age: 63 Year
  Sex: Female
  Weight: 68.04 kg

DRUGS (1)
  1. METOPROLOL SUCC ER [Suspect]
     Indication: BLOOD PRESSURE ABNORMAL
     Route: 048

REACTIONS (7)
  - Headache [None]
  - Eye pain [None]
  - Balance disorder [None]
  - Ocular discomfort [None]
  - Product substitution issue [None]
  - Product quality issue [None]
  - Reaction to drug excipients [None]
